FAERS Safety Report 24061481 (Version 1)
Quarter: 2024Q3

REPORT INFORMATION
  Report Type: Spontaneous
  Country: SA (occurrence: SA)
  Receive Date: 20240708
  Receipt Date: 20240708
  Transmission Date: 20241016
  Serious: Yes (Death, Hospitalization)
  Sender: ALNYLAM PHARMACEUTICALS
  Company Number: SA-ALNYLAM PHARMACEUTICALS, INC.-ALN-2024-003715

PATIENT

DRUGS (1)
  1. GIVLAARI [Suspect]
     Active Substance: GIVOSIRAN SODIUM
     Indication: Porphyria acute
     Dosage: 120 MILLIGRAM (2.5 MG/KG), MONTHLY
     Route: 058

REACTIONS (5)
  - Porphyria acute [Fatal]
  - Nosocomial infection [Unknown]
  - Localised infection [Unknown]
  - Decubitus ulcer [Unknown]
  - Septic shock [Unknown]
